FAERS Safety Report 5583856-9 (Version None)
Quarter: 2008Q1

REPORT INFORMATION
  Report Type: 
  Country: None (occurrence: None)
  Receive Date: 20080108
  Receipt Date: 20070313
  Transmission Date: 20080703
  Serious: No
  Sender: FDA-Public Use
  Company Number: US-KINGPHARMUSA00001-K200700283

PATIENT

DRUGS (1)
  1. SILVADENE CREAM 1% [Suspect]
     Indication: WOUND
     Route: 061
     Dates: start: 20020101

REACTIONS (4)
  - CONDITION AGGRAVATED [None]
  - HYPERSENSITIVITY [None]
  - HYPERTROPHIC SCAR [None]
  - UNEVALUABLE EVENT [None]
